FAERS Safety Report 5389252-1 (Version None)
Quarter: 2007Q3

REPORT INFORMATION
  Report Type: 
  Country: None (occurrence: None)
  Receive Date: 20070717
  Receipt Date: 20070711
  Transmission Date: 20080115
  Serious: Yes (Disabling)
  Sender: FDA-Public Use
  Company Number: B0475075A

PATIENT
  Age: 89 Year
  Sex: Female

DRUGS (12)
  1. PAXIL [Suspect]
     Indication: DEPRESSION
     Dosage: 20MG PER DAY
     Route: 048
     Dates: start: 20070527, end: 20070612
  2. CHINESE MEDICINE [Suspect]
     Indication: DEPRESSION
     Dosage: 2.5G THREE TIMES PER DAY
     Route: 048
     Dates: start: 20070526, end: 20070626
  3. MYSLEE [Suspect]
     Indication: DEPRESSION
     Dosage: 10MG PER DAY
     Route: 048
     Dates: start: 20070605, end: 20070618
  4. SEDIEL [Concomitant]
     Indication: DEPRESSION
     Dosage: 20MG PER DAY
     Route: 048
     Dates: end: 20070612
  5. DOGMATYL [Concomitant]
     Indication: DEPRESSION
     Dosage: 100MG PER DAY
     Route: 048
     Dates: end: 20070612
  6. DEPAS [Concomitant]
     Indication: DEPRESSION
     Dosage: 1MG PER DAY
     Route: 048
     Dates: start: 20070605, end: 20070612
  7. NORVASC [Concomitant]
     Indication: HYPERTENSION
     Dosage: 5MG PER DAY
     Route: 048
  8. BLOPRESS [Concomitant]
     Indication: HYPERTENSION
     Dosage: 8MG PER DAY
     Route: 048
  9. LEDOLPER [Concomitant]
     Indication: DEPRESSION
     Dosage: .25MG PER DAY
     Route: 048
     Dates: end: 20070612
  10. LEDOLPER [Concomitant]
     Dosage: .125MG PER DAY
     Route: 048
     Dates: start: 20070618
  11. METHYCOBAL [Concomitant]
     Dosage: 1500MCG PER DAY
     Route: 048
  12. BONALON [Concomitant]
     Indication: OSTEOPOROSIS
     Dosage: 5MG PER DAY
     Route: 048

REACTIONS (4)
  - ANGLE CLOSURE GLAUCOMA [None]
  - EYE OEDEMA [None]
  - HEADACHE [None]
  - HYPERAEMIA [None]
